FAERS Safety Report 9236911 (Version 1)
Quarter: 2013Q2

REPORT INFORMATION
  Report Type: Report from Study
  Country: US (occurrence: US)
  Receive Date: 20130417
  Receipt Date: 20130417
  Transmission Date: 20140414
  Serious: Yes (Other)
  Sender: FDA-Public Use
  Company Number: US-ASTRAZENECA-2013SE10417

PATIENT
  Age: 53 Year
  Sex: Female
  Weight: 93 kg

DRUGS (7)
  1. SEROQUEL XR [Suspect]
     Indication: BIPOLAR II DISORDER
     Route: 048
     Dates: start: 201207, end: 20130131
  2. ATENOLOL [Suspect]
     Indication: HYPERTENSION
     Route: 048
  3. LISINOPRIL AND HYDROCHLOROTHIAZIDE [Suspect]
     Indication: HEART RATE IRREGULAR
     Dosage: 20 OVER 25, DAILY
     Route: 048
  4. EFFEXOR [Concomitant]
     Indication: DEPRESSION
     Route: 048
     Dates: start: 201207
  5. LIPITOR [Concomitant]
     Indication: BLOOD CHOLESTEROL INCREASED
     Route: 048
  6. LAMICTAL [Concomitant]
     Indication: BIPOLAR DISORDER
     Route: 048
  7. ATIVAN [Concomitant]
     Route: 048

REACTIONS (7)
  - Tremor [Recovered/Resolved]
  - Insomnia [Unknown]
  - Visual impairment [Unknown]
  - Major depression [Unknown]
  - Disturbance in attention [Unknown]
  - Off label use [Unknown]
  - Drug dose omission [Unknown]
